FAERS Safety Report 5937937-8 (Version None)
Quarter: 2008Q4

REPORT INFORMATION
  Report Type: 
  Country: None (occurrence: None)
  Receive Date: 20081031
  Receipt Date: 20081023
  Transmission Date: 20090506
  Serious: Yes (Other)
  Sender: FDA-Public Use
  Company Number: US-PFIZER INC-2008039142

PATIENT
  Sex: Female
  Weight: 82.6 kg

DRUGS (14)
  1. EXUBERA [Suspect]
     Indication: TYPE 2 DIABETES MELLITUS
     Dates: start: 20070401, end: 20080401
  2. LIPITOR [Suspect]
     Indication: BLOOD CHOLESTEROL INCREASED
     Dates: start: 20070101
  3. TRANXENE [Concomitant]
     Indication: PANIC DISORDER
  4. EFFEXOR [Concomitant]
  5. PLAVIX [Concomitant]
  6. ALL OTHER THERAPEUTIC PRODUCTS [Concomitant]
  7. LANTUS [Concomitant]
  8. FUROSEMIDE [Concomitant]
  9. CLONIDINE [Concomitant]
  10. CENTRUM SILVER [Concomitant]
  11. ACETYLSALICYLIC ACID SRT [Concomitant]
  12. CALCIUM [Concomitant]
  13. HUMALOG [Concomitant]
  14. AMLODIPINE BESYLATE/VALSARTAN [Concomitant]
     Indication: HYPERTENSION

REACTIONS (10)
  - ABDOMINAL PAIN UPPER [None]
  - BLOOD CHOLESTEROL INCREASED [None]
  - BLOOD GLUCOSE INCREASED [None]
  - CHEST DISCOMFORT [None]
  - COUGH [None]
  - DYSPNOEA [None]
  - INFLUENZA [None]
  - RASH ERYTHEMATOUS [None]
  - SWELLING [None]
  - WEIGHT INCREASED [None]
